FAERS Safety Report 22615535 (Version 1)
Quarter: 2023Q2

REPORT INFORMATION
  Report Type: Spontaneous
  Country: MX (occurrence: MX)
  Receive Date: 20230619
  Receipt Date: 20230619
  Transmission Date: 20230721
  Serious: Yes (Hospitalization, Other)
  Sender: FDA-Public Use
  Company Number: MX-APOTEX-2023AP009121

PATIENT
  Sex: Male
  Weight: 1.6 kg

DRUGS (1)
  1. CARBAMAZEPINE [Suspect]
     Active Substance: CARBAMAZEPINE
     Indication: Frontal lobe epilepsy
     Dosage: UNK
     Route: 064
     Dates: start: 201712, end: 2018

REACTIONS (4)
  - Foetal distress syndrome [Recovering/Resolving]
  - Haemodynamic instability [Recovering/Resolving]
  - Premature baby [Unknown]
  - Foetal exposure during pregnancy [Unknown]

NARRATIVE: CASE EVENT DATE: 20171201
